FAERS Safety Report 18433721 (Version 2)
Quarter: 2020Q4

REPORT INFORMATION
  Report Type: Spontaneous
  Country: JP (occurrence: JP)
  Receive Date: 20201027
  Receipt Date: 20201216
  Transmission Date: 20210114
  Serious: No
  Sender: FDA-Public Use
  Company Number: JP-DSJP-DSJ-2020-131077

PATIENT
  Age: 54 Year
  Sex: Female
  Weight: 42 kg

DRUGS (8)
  1. ENHERTU [Suspect]
     Active Substance: FAM-TRASTUZUMAB DERUXTECAN-NXKI
     Indication: INVASIVE DUCTAL BREAST CARCINOMA
     Dosage: 221.4 MG, 2020/09/07, 09/28
     Route: 041
     Dates: start: 20200907, end: 20200928
  2. GRANISETRON                        /01178102/ [Concomitant]
     Active Substance: GRANISETRON
     Dosage: 1 MG, ONCE EVERY 3 WK
     Route: 041
     Dates: start: 20200907
  3. ENHERTU [Suspect]
     Active Substance: FAM-TRASTUZUMAB DERUXTECAN-NXKI
     Dosage: UNK
  4. RANMARK [Concomitant]
     Active Substance: DENOSUMAB
     Dosage: 120 MG, ONCE EVERY 1 MO
     Route: 058
     Dates: start: 20200914
  5. DENOTAS [Concomitant]
     Active Substance: CALCIUM CARBONATE\CHOLECALCIFEROL\MAGNESIUM CARBONATE
     Dosage: 2 DF, QD AFTER BREAKFAST
     Route: 048
     Dates: start: 20200518
  6. DECADRON [Concomitant]
     Active Substance: DEXAMETHASONE
     Dosage: 4 MGX2 DAYS, DAY2,3
     Route: 048
     Dates: start: 20200908
  7. DEXART [Concomitant]
     Active Substance: DEXAMETHASONE SODIUM PHOSPHATE
     Dosage: 9.9 MG, ONCE EVERY 3 WK
     Route: 041
     Dates: start: 20200907
  8. ENHERTU [Suspect]
     Active Substance: FAM-TRASTUZUMAB DERUXTECAN-NXKI
     Dosage: 180 MG, 2020/10/26, 11/16
     Route: 041
     Dates: start: 20201026, end: 20201116

REACTIONS (1)
  - Neutrophil count decreased [Recovered/Resolved]

NARRATIVE: CASE EVENT DATE: 20201019
